FAERS Safety Report 20097107 (Version 1)
Quarter: 2021Q4

REPORT INFORMATION
  Report Type: Spontaneous
  Country: TW (occurrence: TW)
  Receive Date: 20211122
  Receipt Date: 20211122
  Transmission Date: 20220304
  Serious: Yes (Other)
  Sender: FDA-Public Use
  Company Number: TW-NOVARTISPH-NVSC2021TW257374

PATIENT
  Age: 6 Year
  Sex: Male
  Weight: 20.3 kg

DRUGS (3)
  1. METHYLPHENIDATE [Suspect]
     Active Substance: METHYLPHENIDATE
     Indication: Attention deficit hyperactivity disorder
     Dosage: 10 MG
     Route: 048
  2. METHYLPHENIDATE [Suspect]
     Active Substance: METHYLPHENIDATE
     Dosage: 10 MG, QD  (IN MORNING) 8 WEEKS
     Route: 048
  3. METHYLPHENIDATE [Suspect]
     Active Substance: METHYLPHENIDATE
     Dosage: 5 MG (IN MORNING)
     Route: 065

REACTIONS (5)
  - Dystonia [Recovered/Resolved]
  - Pain in extremity [Unknown]
  - Foot deformity [Unknown]
  - Gait disturbance [Unknown]
  - Product dose omission issue [Unknown]
